FAERS Safety Report 4949652-8 (Version None)
Quarter: 2006Q1

REPORT INFORMATION
  Report Type: 
  Country: None (occurrence: None)
  Receive Date: 20060316
  Receipt Date: 20060303
  Transmission Date: 20060701
  Serious: Yes (Other)
  Sender: FDA-Public Use
  Company Number: US-2006-002154

PATIENT
  Age: 48 Year
  Sex: Female
  Weight: 54 kg

DRUGS (2)
  1. BETASERON [Suspect]
     Indication: RELAPSING-REMITTING MULTIPLE SCLEROSIS
     Dosage: 6 MIU, EVERY 2D, SUBCUTANEOUS
     Route: 058
     Dates: start: 19950622, end: 20060128
  2. BETASERON [Suspect]
     Indication: RELAPSING-REMITTING MULTIPLE SCLEROSIS
     Dosage: 6 MIU, EVERY 2D, SUBCUTANEOUS
     Route: 058
     Dates: start: 20060228

REACTIONS (8)
  - COLLAPSE OF LUNG [None]
  - DRUG INEFFECTIVE [None]
  - LYMPHADENOPATHY [None]
  - MALAISE [None]
  - OBSTRUCTION [None]
  - PNEUMONIA [None]
  - PULMONARY MASS [None]
  - SARCOIDOSIS [None]
